FAERS Safety Report 11680594 (Version 2)
Quarter: 2015Q4

REPORT INFORMATION
  Report Type: Spontaneous
  Country: US (occurrence: US)
  Receive Date: 20151027
  Receipt Date: 20151104
  Transmission Date: 20160304
  Serious: No
  Sender: FDA-Public Use
  Company Number: US-ELI_LILLY_AND_COMPANY-US201010002690

PATIENT
  Age: 52 Year
  Sex: Female

DRUGS (6)
  1. EFFEXOR [Concomitant]
     Active Substance: VENLAFAXINE HYDROCHLORIDE
     Indication: HOT FLUSH
     Dosage: 37.5 MG, 2/D
     Dates: start: 20101020
  2. FORTEO [Suspect]
     Active Substance: TERIPARATIDE
     Dosage: 20 UG, DAILY (1/D)
  3. FORTEO [Suspect]
     Active Substance: TERIPARATIDE
     Indication: OSTEOPOROSIS
     Dosage: 20 UG, DAILY (1/D)
     Dates: start: 2010
  4. FORTEO [Suspect]
     Active Substance: TERIPARATIDE
     Dosage: 20 UG, DAILY (1/D)
  5. FORTEO [Suspect]
     Active Substance: TERIPARATIDE
     Dosage: 20 UG, QD
  6. FORTEO [Suspect]
     Active Substance: TERIPARATIDE
     Dosage: 20 UG, QD
     Dates: end: 20110831

REACTIONS (33)
  - Euphoric mood [Unknown]
  - Orthosis user [Unknown]
  - Movement disorder [Unknown]
  - Arthritis [Unknown]
  - Feeling abnormal [Unknown]
  - Decreased appetite [Unknown]
  - Injection site discolouration [Unknown]
  - Fear [Unknown]
  - Pain in extremity [Unknown]
  - Headache [Unknown]
  - Gait disturbance [Unknown]
  - Malabsorption [Unknown]
  - Injection site mass [Recovered/Resolved]
  - Haemorrhage [Recovered/Resolved]
  - Diarrhoea [Recovered/Resolved]
  - Bone pain [Recovering/Resolving]
  - Injection site haemorrhage [Recovered/Resolved]
  - Extravasation blood [Recovered/Resolved]
  - Dizziness [Unknown]
  - Chills [Unknown]
  - Drug ineffective [Unknown]
  - Mydriasis [Unknown]
  - Inappropriate affect [Unknown]
  - Musculoskeletal disorder [Unknown]
  - Middle insomnia [Unknown]
  - Adverse drug reaction [Unknown]
  - Injection site pain [Not Recovered/Not Resolved]
  - Injection site bruising [Recovering/Resolving]
  - Nausea [Unknown]
  - Musculoskeletal pain [Recovering/Resolving]
  - Joint swelling [Unknown]
  - Vascular injury [Recovered/Resolved]
  - Peripheral swelling [Unknown]

NARRATIVE: CASE EVENT DATE: 20101020
